FAERS Safety Report 20213384 (Version 1)
Quarter: 2021Q4

REPORT INFORMATION
  Report Type: Spontaneous
  Country: US (occurrence: US)
  Receive Date: 20211221
  Receipt Date: 20211221
  Transmission Date: 20220303
  Serious: Yes (Other)
  Sender: FDA-Public Use
  Company Number: ALC2021US006527

PATIENT
  Sex: Male

DRUGS (2)
  1. PROPARACAINE HYDROCHLORIDE [Suspect]
     Active Substance: PROPARACAINE HYDROCHLORIDE
     Indication: Product used for unknown indication
     Dosage: UNK
     Route: 065
  2. PROCAINE [Suspect]
     Active Substance: PROCAINE
     Indication: Product used for unknown indication
     Route: 065

REACTIONS (3)
  - Loss of consciousness [Recovered/Resolved]
  - Drug hypersensitivity [Recovered/Resolved]
  - Blood pressure decreased [Recovered/Resolved]
